FAERS Safety Report 6781620-6 (Version None)
Quarter: 2010Q2

REPORT INFORMATION
  Report Type: 
  Country: None (occurrence: None)
  Receive Date: 20100617
  Receipt Date: 20100617
  Transmission Date: 20101027
  Serious: Yes (Other)
  Sender: FDA-Public Use
  Company Number: None

PATIENT
  Age: 2 Year
  Sex: Female
  Weight: 15.8759 kg

DRUGS (1)
  1. SELENIUM SULFIDE [Suspect]
     Indication: DANDRUFF
     Dosage: MASSAGE 15-30ML TWICE WEEKLY TOP
     Route: 061
     Dates: start: 20100518, end: 20100613

REACTIONS (10)
  - ALOPECIA [None]
  - APPLICATION SITE BLEEDING [None]
  - APPLICATION SITE SWELLING [None]
  - APPLICATION SITE VESICLES [None]
  - CHEMICAL BURN OF SKIN [None]
  - FEELING ABNORMAL [None]
  - PRODUCT QUALITY ISSUE [None]
  - RASH [None]
  - SCRATCH [None]
  - SKIN IRRITATION [None]
